FAERS Safety Report 14721244 (Version 2)
Quarter: 2018Q2

REPORT INFORMATION
  Report Type: Report from Study
  Country: CA (occurrence: CA)
  Receive Date: 20180405
  Receipt Date: 20180413
  Transmission Date: 20180711
  Serious: Yes (Death)
  Sender: FDA-Public Use
  Company Number: CA-HLSUS-2018-CA-000573

PATIENT
  Age: 47 Year
  Sex: Female
  Weight: 67.59 kg

DRUGS (5)
  1. ATROPINE 1% [Concomitant]
     Active Substance: ATROPINE
     Indication: SALIVARY HYPERSECRETION
     Dosage: 2 DROPS AT BEDTIME AS NEEDED
     Route: 060
     Dates: start: 201501, end: 20180323
  2. FERROUS FUMARATE [Concomitant]
     Active Substance: FERROUS FUMARATE
     Indication: ANAEMIA
     Dosage: 300 MG EVERY MORNING
     Route: 048
     Dates: start: 201501, end: 20180323
  3. CLOZARIL [Suspect]
     Active Substance: CLOZAPINE
     Indication: SCHIZOPHRENIA
     Dosage: 300 MG AT BED TIME
     Route: 048
     Dates: start: 201501, end: 20180323
  4. CLONAZEPAM. [Concomitant]
     Active Substance: CLONAZEPAM
     Indication: ANXIETY
     Dosage: 0.5 MG AS NEEDED
     Route: 048
     Dates: start: 201501, end: 20180323
  5. TRAZODONE [Concomitant]
     Active Substance: TRAZODONE HYDROCHLORIDE
     Indication: INSOMNIA
     Dosage: 150 MG AT BEDTIME
     Route: 048
     Dates: start: 201501, end: 20180323

REACTIONS (1)
  - Accidental overdose [Fatal]

NARRATIVE: CASE EVENT DATE: 20180323
